FAERS Safety Report 5557118-X (Version None)
Quarter: 2007Q4

REPORT INFORMATION
  Report Type: 
  Country: None (occurrence: None)
  Receive Date: 20071211
  Receipt Date: 20071211
  Transmission Date: 20080405
  Serious: Yes (Hospitalization, Other)
  Sender: FDA-Public Use
  Company Number: None

PATIENT
  Sex: Female

DRUGS (12)
  1. REVLIMID [Suspect]
     Indication: MULTIPLE MYELOMA
     Dosage: 25MG DAILY 21D/28D PO
     Route: 048
  2. ASPIRIN [Concomitant]
  3. OMEPRAZOLE [Concomitant]
  4. NOVOLIN 50/50 [Concomitant]
  5. LANTUS [Concomitant]
  6. GLYBURIDE [Concomitant]
  7. FUROSEMIDE [Concomitant]
  8. FELODIPINE [Concomitant]
  9. K-TAB [Concomitant]
  10. COMBIVENT [Concomitant]
  11. COZAAR [Concomitant]
  12. SIMVASTATIN [Concomitant]

REACTIONS (1)
  - PULMONARY EMBOLISM [None]
